FAERS Safety Report 21146565 (Version 2)
Quarter: 2022Q4

REPORT INFORMATION
  Report Type: Report from Study
  Country: DE (occurrence: DE)
  Receive Date: 20220729
  Receipt Date: 20221205
  Transmission Date: 20230113
  Serious: Yes (Disabling)
  Sender: FDA-Public Use
  Company Number: DE-UCBSA-2022041739

PATIENT
  Sex: Female

DRUGS (5)
  1. CERTOLIZUMAB PEGOL [Suspect]
     Active Substance: CERTOLIZUMAB PEGOL
     Indication: Rheumatoid arthritis
     Dosage: 200 MILLIGRAM, EV 2 WEEKS(QOW)
  2. TRIAMCINOLONE ACETONIDE [Concomitant]
     Active Substance: TRIAMCINOLONE ACETONIDE
     Indication: Rotator cuff syndrome
     Dosage: UNK
  3. BUCAINE [Concomitant]
     Indication: Rotator cuff syndrome
     Dosage: UNK
  4. IBUPROFEN [Concomitant]
     Active Substance: IBUPROFEN
     Indication: Rotator cuff syndrome
     Dosage: UNK
     Dates: start: 201912
  5. CHOLECALCIFEROL [Concomitant]
     Active Substance: CHOLECALCIFEROL
     Indication: Rotator cuff syndrome
     Dosage: 1000 IU
     Dates: start: 201212

REACTIONS (3)
  - Rotator cuff syndrome [Recovered/Resolved]
  - Osteoporosis [Unknown]
  - Migraine [Unknown]

NARRATIVE: CASE EVENT DATE: 20220101
